FAERS Safety Report 5357854-4 (Version None)
Quarter: 2007Q2

REPORT INFORMATION
  Report Type: 
  Country: None (occurrence: None)
  Receive Date: 20070530
  Receipt Date: 20070220
  Transmission Date: 20071010
  Serious: Yes (Hospitalization)
  Sender: FDA-Public Use
  Company Number: US200701002769

PATIENT
  Age: 47 Year
  Sex: Male
  Weight: 68 kg

DRUGS (10)
  1. ZYPREXA [Suspect]
     Indication: MENTAL DISORDER
     Dosage: 7.5 MG; 5 MG; 20 MG; 15MG
     Dates: start: 19990420, end: 19990817
  2. ZYPREXA [Suspect]
     Indication: MENTAL DISORDER
     Dosage: 7.5 MG; 5 MG; 20 MG; 15MG
     Dates: start: 19980311, end: 20020513
  3. ZYPREXA [Suspect]
     Indication: MENTAL DISORDER
     Dosage: 7.5 MG; 5 MG; 20 MG; 15MG
     Dates: start: 20020513, end: 20020804
  4. ZYPREXA [Suspect]
     Indication: MENTAL DISORDER
     Dosage: 7.5 MG; 5 MG; 20 MG; 15MG
     Dates: start: 20051221
  5. SEROQUEL [Concomitant]
  6. RISPERDAL [Concomitant]
  7. LITHIUM CARBONATE [Concomitant]
  8. WELLBUTRIN [Concomitant]
  9. TOFRANIL-PM (IMIPRAMINE EMBONATE) [Concomitant]
  10. PAXIL [Concomitant]

REACTIONS (4)
  - BLOOD GLUCOSE ABNORMAL [None]
  - DIABETES MELLITUS [None]
  - METABOLIC DISORDER [None]
  - WEIGHT DECREASED [None]
